FAERS Safety Report 17975985 (Version 1)
Quarter: 2020Q3

REPORT INFORMATION
  Report Type: Spontaneous
  Country: US (occurrence: US)
  Receive Date: 20200702
  Receipt Date: 20200702
  Transmission Date: 20201103
  Serious: Yes (Other)
  Sender: FDA-Public Use
  Company Number: US-COOPERSURGICAL, INC.-US-2020CPS001491

PATIENT
  Age: 28 Year
  Sex: Female

DRUGS (3)
  1. PARAGARD T 380A [Suspect]
     Active Substance: COPPER
     Indication: CONTRACEPTION
     Dosage: UNK
     Route: 015
     Dates: start: 201901
  2. VITAMINS                           /00067501/ [Concomitant]
     Active Substance: VITAMINS
     Indication: VITAMIN SUPPLEMENTATION
     Dosage: UNK
     Route: 065
  3. CYCLOBENZAPRINE. [Concomitant]
     Active Substance: CYCLOBENZAPRINE
     Indication: LIMB INJURY
     Dosage: UNK
     Route: 065

REACTIONS (10)
  - Parosmia [Not Recovered/Not Resolved]
  - Complication of device removal [Not Recovered/Not Resolved]
  - Sensitive skin [Not Recovered/Not Resolved]
  - Complication associated with device [Not Recovered/Not Resolved]
  - Ovarian cyst [Not Recovered/Not Resolved]
  - Lactation disorder [Recovered/Resolved]
  - Drug ineffective [Unknown]
  - Embedded device [Not Recovered/Not Resolved]
  - Subchorionic haemorrhage [Not Recovered/Not Resolved]
  - Pregnancy with contraceptive device [Not Recovered/Not Resolved]

NARRATIVE: CASE EVENT DATE: 202002
